FAERS Safety Report 5826649-7 (Version None)
Quarter: 2008Q3

REPORT INFORMATION
  Report Type: 
  Country: None (occurrence: None)
  Receive Date: 20080730
  Receipt Date: 20080722
  Transmission Date: 20090109
  Serious: Yes (Hospitalization)
  Sender: FDA-Public Use
  Company Number: CO-JNJFOC-20080705863

PATIENT
  Age: 42 Year
  Sex: Female

DRUGS (1)
  1. RISPERDAL CONSTA [Suspect]
     Indication: SCHIZOPHRENIA
     Dosage: 1 AMPUL
     Route: 030

REACTIONS (4)
  - AGGRESSION [None]
  - ANOREXIA [None]
  - SOMNAMBULISM [None]
  - SYNCOPE [None]
